FAERS Safety Report 11630742 (Version 3)
Quarter: 2015Q4

REPORT INFORMATION
  Report Type: Report from Study
  Country: RS (occurrence: RS)
  Receive Date: 20151014
  Receipt Date: 20151217
  Transmission Date: 20160304
  Serious: Yes (Hospitalization)
  Sender: FDA-Public Use
  Company Number: RS-PFIZER INC-2015313573

PATIENT
  Age: 23 Year
  Sex: Male
  Weight: 94 kg

DRUGS (3)
  1. SILDENAFIL CITRATE. [Suspect]
     Active Substance: SILDENAFIL CITRATE
     Indication: PULMONARY HYPERTENSION
     Dosage: 20 MG, 3X/DAY
     Route: 048
     Dates: start: 20150409, end: 20150914
  2. LASIX [Concomitant]
     Active Substance: FUROSEMIDE
     Indication: PULMONARY HYPERTENSION
     Dosage: 40 MG, 2X/DAY
     Route: 048
     Dates: start: 20150305
  3. ALDACTONE [Concomitant]
     Active Substance: SPIRONOLACTONE
     Indication: PULMONARY HYPERTENSION
     Dosage: 25 MG, 2X/WEEK
     Route: 048
     Dates: start: 20150305

REACTIONS (1)
  - Hypersensitivity vasculitis [Recovered/Resolved with Sequelae]

NARRATIVE: CASE EVENT DATE: 20150911
